FAERS Safety Report 15776913 (Version 5)
Quarter: 2019Q2

REPORT INFORMATION
  Report Type: Spontaneous
  Country: US (occurrence: US)
  Receive Date: 20181231
  Receipt Date: 20190509
  Transmission Date: 20190711
  Serious: No
  Sender: FDA-Public Use
  Company Number: US-PFIZER INC-2018533527

PATIENT
  Age: 66 Year
  Sex: Female
  Weight: 63 kg

DRUGS (3)
  1. NICOTROL [Suspect]
     Active Substance: NICOTINE
     Indication: SMOKING CESSATION THERAPY
     Dosage: 10 MG, 6X/DAY
     Route: 055
     Dates: start: 20181217, end: 20181217
  2. OMEPRAZOLE. [Concomitant]
     Active Substance: OMEPRAZOLE
     Indication: ULCER
     Dosage: 40 MG, 2X/DAY
     Route: 048
     Dates: start: 20180315
  3. NICOTROL [Suspect]
     Active Substance: NICOTINE
     Indication: EX-TOBACCO USER
     Dosage: 4 MG, SINGLE (INHALATION ONCE; TRIED TO USE IT AGAIN)
     Route: 055
     Dates: start: 20181217, end: 20181217

REACTIONS (4)
  - Intentional product misuse [Unknown]
  - Throat irritation [Unknown]
  - Scratch [Unknown]
  - Drug ineffective [Unknown]

NARRATIVE: CASE EVENT DATE: 20181217
